FAERS Safety Report 6505036-2 (Version None)
Quarter: 2009Q4

REPORT INFORMATION
  Report Type: 
  Country: None (occurrence: None)
  Receive Date: 20091216
  Receipt Date: 20091204
  Transmission Date: 20100525
  Serious: Yes (Hospitalization)
  Sender: FDA-Public Use
  Company Number: DE-1171578

PATIENT
  Sex: Male

DRUGS (1)
  1. FLUORESCITE [Suspect]
     Route: 040

REACTIONS (1)
  - BRADYCARDIA [None]
